FAERS Safety Report 15855831 (Version 4)
Quarter: 2019Q2

REPORT INFORMATION
  Report Type: Spontaneous
  Country: IT (occurrence: IT)
  Receive Date: 20190123
  Receipt Date: 20190401
  Transmission Date: 20190711
  Serious: Yes (Hospitalization, Other)
  Sender: FDA-Public Use
  Company Number: IT-UCBSA-2019002056

PATIENT
  Age: 36 Year
  Sex: Female

DRUGS (9)
  1. VIMPAT [Suspect]
     Active Substance: LACOSAMIDE
     Indication: PRODUCT USED FOR UNKNOWN INDICATION
     Dosage: 150 MG, 2X/DAY (BID)
  2. VALIUM [Concomitant]
     Active Substance: DIAZEPAM
     Indication: PRODUCT USED FOR UNKNOWN INDICATION
  3. ABILIFY [Concomitant]
     Active Substance: ARIPIPRAZOLE
     Indication: PRODUCT USED FOR UNKNOWN INDICATION
  4. VIMPAT [Suspect]
     Active Substance: LACOSAMIDE
     Dosage: 200 MG, 2X/DAY (BID)
     Dates: end: 201807
  5. SEROQUEL [Concomitant]
     Active Substance: QUETIAPINE FUMARATE
     Indication: PRODUCT USED FOR UNKNOWN INDICATION
  6. TAVOR [Concomitant]
     Indication: PRODUCT USED FOR UNKNOWN INDICATION
  7. NUBRIVEO [Suspect]
     Active Substance: BRIVARACETAM
     Dosage: 200 MG, 2X/DAY (BID)
     Dates: end: 201903
  8. TEGRETOL [Concomitant]
     Active Substance: CARBAMAZEPINE
     Indication: PRODUCT USED FOR UNKNOWN INDICATION
  9. NUBRIVEO [Suspect]
     Active Substance: BRIVARACETAM
     Indication: PRODUCT USED FOR UNKNOWN INDICATION
     Dosage: 150 MG, 2X/DAY (BID)
     Dates: start: 201807

REACTIONS (9)
  - Partial seizures [Recovering/Resolving]
  - Prescribed overdose [Unknown]
  - Aura [Recovering/Resolving]
  - Insomnia [Recovering/Resolving]
  - Soliloquy [Recovering/Resolving]
  - Paradoxical drug reaction [Recovering/Resolving]
  - Anxiety disorder [Recovering/Resolving]
  - Off label use [Unknown]
  - Obsessive thoughts [Recovering/Resolving]

NARRATIVE: CASE EVENT DATE: 201807
